FAERS Safety Report 14248503 (Version 1)
Quarter: 2017Q4

REPORT INFORMATION
  Report Type: Spontaneous
  Country: CN (occurrence: CN)
  Receive Date: 20171204
  Receipt Date: 20171204
  Transmission Date: 20180321
  Serious: Yes (Other)
  Sender: FDA-Public Use
  Company Number: CN-CELGENEUS-CHN-20171107233

PATIENT

DRUGS (2)
  1. ABRAXANE [Suspect]
     Active Substance: PACLITAXEL
     Indication: BILIARY CANCER METASTATIC
     Dosage: 100-250 MG/SQ. METER
     Route: 041
  2. CYCLOPHOSPHAMIDE. [Suspect]
     Active Substance: CYCLOPHOSPHAMIDE
     Indication: BILIARY CANCER METASTATIC
     Dosage: 15-35 MG/KG
     Route: 065

REACTIONS (11)
  - Pyrexia [Unknown]
  - Vomiting [Unknown]
  - Lymphopenia [Unknown]
  - Fatigue [Unknown]
  - Myalgia [Unknown]
  - Arthralgia [Unknown]
  - Thrombocytopenia [Unknown]
  - Nausea [Unknown]
  - Mouth ulceration [Unknown]
  - Anaemia [Unknown]
  - Chills [Unknown]
